FAERS Safety Report 7356787-1 (Version None)
Quarter: 2011Q1

REPORT INFORMATION
  Report Type: 
  Country: None (occurrence: None)
  Receive Date: 20110316
  Receipt Date: 20110310
  Transmission Date: 20110831
  Serious: Yes (Hospitalization)
  Sender: FDA-Public Use
  Company Number: GB-BRISTOL-MYERS SQUIBB COMPANY-15540297

PATIENT
  Age: 75 Year
  Sex: Male
  Weight: 77 kg

DRUGS (12)
  1. ONGLYZA [Suspect]
     Indication: TYPE 2 DIABETES MELLITUS
     Route: 048
     Dates: start: 20110112, end: 20110204
  2. ATORVASTATIN [Concomitant]
     Indication: MYOCARDIAL ISCHAEMIA
     Dosage: TAB
  3. MANEVAC [Concomitant]
     Indication: GASTROINTESTINAL DISORDER
     Dosage: 1DF= 2X5 ML SPOON 2PER 1 DAY MANEVAC  GRANULES
  4. BISOPROLOL [Concomitant]
     Indication: MYOCARDIAL ISCHAEMIA
     Dosage: BISOPROLOL  TAB
  5. FUROSEMIDE [Concomitant]
     Indication: MYOCARDIAL ISCHAEMIA
     Dosage: ONE IN MORNING  FUROSEMIDE  TAB
  6. GLICLAZIDE [Concomitant]
     Indication: DIABETES MELLITUS
     Dosage: GLICLAZIDE TAB
  7. ACETAMINOPHEN [Concomitant]
     Indication: MUSCULOSKELETAL DISORDER
     Dosage: PARACETAMOL 500MG TAB TAKE TWO 4 TIMES/DAY
  8. BUDESONIDE + FORMOTEROL FUMARATE [Concomitant]
     Indication: CELLULITIS
     Dosage: BUDESONIDE  200 MICROGRAMS/DOSE + FORMOTEROL 6 MICROGRAMS /DOSE DRY POWDER INHALER
     Route: 055
  9. BUDESONIDE + FORMOTEROL FUMARATE [Concomitant]
     Indication: RESPIRATORY DISORDER
     Dosage: BUDESONIDE  200 MICROGRAMS/DOSE + FORMOTEROL 6 MICROGRAMS /DOSE DRY POWDER INHALER
     Route: 055
  10. GLYCERYL TRINITRATE [Concomitant]
     Indication: MYOCARDIAL ISCHAEMIA
     Dosage: GLYCERYL TRINITRATE 400MICROGRAMS/DOSEPUMP SUBLINGUAL SPRAY
     Route: 060
  11. NICORANDIL [Concomitant]
     Indication: CARDIOVASCULAR DISORDER
     Dosage: TAB
  12. ANGITIL [Concomitant]
     Indication: MYOCARDIAL ISCHAEMIA
     Dosage: ANGITIL XL DISPERSIBLE TABLETS

REACTIONS (2)
  - PULMONARY OEDEMA [None]
  - DYSPNOEA [None]
